FAERS Safety Report 6552171-9 (Version None)
Quarter: 2010Q1

REPORT INFORMATION
  Report Type: 
  Country: None (occurrence: None)
  Receive Date: 20100126
  Receipt Date: 20100115
  Transmission Date: 20100710
  Serious: Yes (Other)
  Sender: FDA-Public Use
  Company Number: US-PFIZER INC-2010007193

PATIENT

DRUGS (2)
  1. ZYVOX [Suspect]
     Dosage: UNK
  2. VANCOMYCIN [Suspect]

REACTIONS (2)
  - BRONCHIAL SECRETION RETENTION [None]
  - HYPOXIA [None]
